FAERS Safety Report 7546907-8 (Version None)
Quarter: 2011Q2

REPORT INFORMATION
  Report Type: 
  Country: None (occurrence: None)
  Receive Date: 20110614
  Receipt Date: 20110603
  Transmission Date: 20111010
  Serious: Yes (Other)
  Sender: FDA-Public Use
  Company Number: JP-MERCK-1106USA00709

PATIENT
  Age: 77 Year
  Sex: Male

DRUGS (7)
  1. PEPCID [Suspect]
     Route: 048
  2. OLOPATADINE HCL [Concomitant]
     Route: 048
  3. CERNILTON [Concomitant]
     Route: 048
  4. SERMION [Concomitant]
     Route: 048
  5. ETODOLAC [Concomitant]
     Route: 048
  6. FLIVAS [Concomitant]
     Route: 048
  7. ANPLAG [Concomitant]
     Route: 048

REACTIONS (1)
  - RHABDOMYOLYSIS [None]
